FAERS Safety Report 20215196 (Version 2)
Quarter: 2021Q4

REPORT INFORMATION
  Report Type: Spontaneous
  Country: FR (occurrence: FR)
  Receive Date: 20211222
  Receipt Date: 20211231
  Transmission Date: 20220303
  Serious: Yes (Death)
  Sender: FDA-Public Use
  Company Number: FR-NOVARTISPH-NVSC2021FR293102

PATIENT
  Age: 81 Year
  Sex: Male

DRUGS (1)
  1. ENTRESTO [Suspect]
     Active Substance: SACUBITRIL\VALSARTAN
     Indication: Product used for unknown indication
     Dosage: 200 MG (97/103 MG: SACUBITRIL 97.2 MG, VALSARTAN 102.8 MG)
     Route: 065
     Dates: start: 201702

REACTIONS (1)
  - COVID-19 [Fatal]
